FAERS Safety Report 7683794-1 (Version None)
Quarter: 2011Q3

REPORT INFORMATION
  Report Type: 
  Country: None (occurrence: None)
  Receive Date: 20110815
  Receipt Date: 20110805
  Transmission Date: 20111222
  Serious: Yes (Other)
  Sender: FDA-Public Use
  Company Number: US-ASTRAZENECA-2011SE45155

PATIENT
  Age: 54 Year
  Sex: Female

DRUGS (4)
  1. ARIMIDEX [Suspect]
     Route: 048
  2. CRESTOR [Suspect]
     Route: 048
  3. TAMOXIFEN CITRATE [Suspect]
     Route: 048
  4. LIPITOR [Concomitant]

REACTIONS (6)
  - LIVER INJURY [None]
  - BLOOD CHOLESTEROL INCREASED [None]
  - NEOPLASM MALIGNANT [None]
  - BACK DISORDER [None]
  - MALAISE [None]
  - NERVE INJURY [None]
